FAERS Safety Report 25463090 (Version 1)
Quarter: 2025Q2

REPORT INFORMATION
  Report Type: Report from Study
  Country: BG (occurrence: BG)
  Receive Date: 20250620
  Receipt Date: 20250620
  Transmission Date: 20250717
  Serious: Yes (Hospitalization)
  Sender: ABBVIE
  Company Number: BG-ABBVIE-6333421

PATIENT
  Age: 65 Year
  Sex: Male

DRUGS (1)
  1. HUMIRA [Suspect]
     Active Substance: ADALIMUMAB
     Indication: Ankylosing spondylitis
     Dosage: FREQUENCY TEXT: 1 FL. EVERY 14 DAYS
     Route: 058
     Dates: start: 20210928

REACTIONS (2)
  - Dysuria [Unknown]
  - Nasopharyngitis [Unknown]
